FAERS Safety Report 17939760 (Version 2)
Quarter: 2020Q4

REPORT INFORMATION
  Report Type: Spontaneous
  Country: PR (occurrence: PR)
  Receive Date: 20200624
  Receipt Date: 20201123
  Transmission Date: 20210113
  Serious: No
  Sender: FDA-Public Use
  Company Number: PR-BAYER-2020-123808

PATIENT
  Age: 66 Year
  Sex: Female

DRUGS (2)
  1. STIVARGA [Suspect]
     Active Substance: REGORAFENIB
     Indication: COLON CANCER
     Dosage: DAILY DOSE 160 MG ON 21 DAYS AND 7 DAYS REST
  2. STIVARGA [Suspect]
     Active Substance: REGORAFENIB
     Indication: COLON CANCER
     Dosage: DAILY DOSE 160 MG ON 21 DAYS AND 7 DAYS REST
     Dates: start: 20200508

REACTIONS (3)
  - Chills [None]
  - Rash [None]
  - Therapeutic product ineffective [None]

NARRATIVE: CASE EVENT DATE: 20200618
